FAERS Safety Report 5520210-X (Version None)
Quarter: 2007Q4

REPORT INFORMATION
  Report Type: 
  Country: None (occurrence: None)
  Receive Date: 20071116
  Receipt Date: 20071106
  Transmission Date: 20080405
  Serious: Yes (Hospitalization)
  Sender: FDA-Public Use
  Company Number: US-ABBOTT-07P-163-0423658-00

PATIENT
  Sex: Female
  Weight: 63.56 kg

DRUGS (4)
  1. VICODIN [Suspect]
     Indication: PROCEDURAL PAIN
     Route: 048
     Dates: start: 20071031, end: 20071102
  2. WARFARIN SODIUM [Concomitant]
     Indication: DRUG USE FOR UNKNOWN INDICATION
     Dates: start: 20071031
  3. ANTIINFLAMMATORY [Concomitant]
     Indication: DRUG USE FOR UNKNOWN INDICATION
     Dates: start: 20071031
  4. MORPHINE [Concomitant]
     Indication: PROCEDURAL PAIN
     Dates: start: 20071030, end: 20071030

REACTIONS (2)
  - CONFUSIONAL STATE [None]
  - HOSTILITY [None]
